FAERS Safety Report 17190690 (Version 1)
Quarter: 2019Q4

REPORT INFORMATION
  Report Type: Spontaneous
  Country: US (occurrence: US)
  Receive Date: 20191223
  Receipt Date: 20191223
  Transmission Date: 20200122
  Serious: Yes (Other)
  Sender: FDA-Public Use
  Company Number: US-HORIZON-ACT-0351-2019

PATIENT
  Age: 14 Year
  Sex: Male

DRUGS (1)
  1. ACTIMMUNE [Suspect]
     Active Substance: INTERFERON GAMMA-1B
     Indication: CHRONIC GRANULOMATOUS DISEASE
     Dosage: 50?G THREE TIMES WEEKLY
     Dates: start: 20180919

REACTIONS (6)
  - Cough [Unknown]
  - Haematochezia [Unknown]
  - Ill-defined disorder [Unknown]
  - Intentional product use issue [Unknown]
  - Colitis [Unknown]
  - Injection site pain [Unknown]
